FAERS Safety Report 15255769 (Version 2)
Quarter: 2020Q3

REPORT INFORMATION
  Report Type: Report from Study
  Country: GB (occurrence: GB)
  Receive Date: 20180808
  Receipt Date: 20200909
  Transmission Date: 20201102
  Serious: Yes (Hospitalization, Other)
  Sender: FDA-Public Use
  Company Number: GB-BRISTOL-MYERS SQUIBB COMPANY-BMS-2017-001986

PATIENT
  Sex: Female

DRUGS (4)
  1. ABATACEPT [Suspect]
     Active Substance: ABATACEPT
     Dosage: 125 MG, QWK
     Route: 058
     Dates: start: 20170104
  2. ABATACEPT [Suspect]
     Active Substance: ABATACEPT
     Dosage: 125 MG, QWK
     Route: 058
     Dates: start: 20170104
  3. ABATACEPT [Suspect]
     Active Substance: ABATACEPT
     Indication: MULTIPLE SCLEROSIS
     Dosage: 125 MG, QWK
     Route: 058
     Dates: start: 20160712
  4. ABATACEPT [Suspect]
     Active Substance: ABATACEPT
     Indication: MULTIPLE SCLEROSIS
     Dosage: 125 MG, QWK
     Route: 058
     Dates: start: 20160712

REACTIONS (5)
  - Viraemia [Unknown]
  - Myocardial infarction [Unknown]
  - Dehydration [Unknown]
  - Intentional product use issue [Unknown]
  - Infection [Unknown]
